FAERS Safety Report 6148972-1 (Version None)
Quarter: 2009Q2

REPORT INFORMATION
  Report Type: 
  Country: None (occurrence: None)
  Receive Date: 20090408
  Receipt Date: 20090406
  Transmission Date: 20091009
  Serious: Yes (Hospitalization)
  Sender: FDA-Public Use
  Company Number: DE-PFIZER INC-2008091240

PATIENT

DRUGS (8)
  1. ZELDOX (CAPSULES) [Interacting]
     Route: 048
     Dates: start: 20060715
  2. SORTIS [Interacting]
     Route: 048
  3. TILIDINE [Interacting]
  4. CYMBALTA [Interacting]
     Dates: start: 20070719
  5. CIPRALEX [Interacting]
     Indication: DEPRESSION
     Dates: start: 20060629
  6. SEROQUEL [Interacting]
     Dates: start: 20060705
  7. LAMOTRIGINE [Suspect]
     Dates: start: 20060805
  8. LITHIUM CARBONATE [Concomitant]

REACTIONS (2)
  - DRUG INTERACTION [None]
  - LIVER DISORDER [None]
